FAERS Safety Report 9311279 (Version 1)
Quarter: 2013Q1

REPORT INFORMATION
  Report Type: Spontaneous
  Country: US (occurrence: None)
  Receive Date: 20130329
  Receipt Date: 20130329
  Transmission Date: 20140127
  Serious: Yes (Hospitalization)
  Sender: FDA-Public Use
  Company Number: 140458-1

PATIENT
  Age: 68 Year
  Sex: Male
  Weight: 77 kg

DRUGS (1)
  1. LEUCOVORIN CALCIUM [Suspect]
     Indication: OESOPHAGEAL ADENOCARCINOMA
     Dosage: 400 MG/M2 ON DAY ONE EVERY 14 DAYS
     Dates: start: 20120507

REACTIONS (16)
  - Lung infection [None]
  - Chronic obstructive pulmonary disease [None]
  - Sinus tachycardia [None]
  - Bundle branch block right [None]
  - Malnutrition [None]
  - Thoracic vertebral fracture [None]
  - Diarrhoea [None]
  - Pain [None]
  - Lymphocyte count decreased [None]
  - Fibrin D dimer increased [None]
  - Interstitial lung disease [None]
  - Metastases to spine [None]
  - Drug hypersensitivity [None]
  - Pneumonia aspiration [None]
  - Respiratory syncytial virus test positive [None]
  - Immunosuppression [None]
